FAERS Safety Report 9304499 (Version 1)
Quarter: 2013Q2

REPORT INFORMATION
  Report Type: Spontaneous
  Country: CH (occurrence: CH)
  Receive Date: 20130523
  Receipt Date: 20130523
  Transmission Date: 20140414
  Serious: Yes (Other)
  Sender: FDA-Public Use
  Company Number: CH-ROCHE-1227026

PATIENT
  Sex: Female
  Weight: 2.32 kg

DRUGS (4)
  1. MABTHERA [Suspect]
     Indication: SJOGREN^S SYNDROME
     Route: 064
     Dates: end: 20120402
  2. AERIUS [Suspect]
     Indication: PRODUCT USED FOR UNKNOWN INDICATION
     Route: 064
     Dates: start: 201203, end: 201205
  3. PREDNISONE [Suspect]
     Indication: PRODUCT USED FOR UNKNOWN INDICATION
     Route: 064
     Dates: start: 2012
  4. LEVONORGESTREL + ETHINYL ESTRADIOL [Suspect]
     Indication: SJOGREN^S SYNDROME
     Route: 064
     Dates: start: 201203, end: 20120602

REACTIONS (3)
  - Foetal growth restriction [Unknown]
  - Unintended pregnancy [Unknown]
  - Exposure during pregnancy [Unknown]
